FAERS Safety Report 7285716-4 (Version None)
Quarter: 2011Q1

REPORT INFORMATION
  Report Type: 
  Country: None (occurrence: None)
  Receive Date: 20110210
  Receipt Date: 20110203
  Transmission Date: 20110831
  Serious: Yes (Hospitalization)
  Sender: FDA-Public Use
  Company Number: B0698999A

PATIENT
  Age: 78 Year
  Sex: Female

DRUGS (6)
  1. FUROSEMIDE [Concomitant]
     Indication: HYPERTENSION
     Route: 065
  2. AEROSOL [Concomitant]
  3. PROPAFENONE HCL [Suspect]
     Indication: ARRHYTHMIA SUPRAVENTRICULAR
     Dosage: 150MG THREE TIMES PER DAY
     Route: 048
  4. VERAPAMIL [Concomitant]
     Indication: ARRHYTHMIA SUPRAVENTRICULAR
  5. RAMIPRIL [Concomitant]
     Indication: HYPERTENSION
     Route: 065
  6. IVABRADINE HYDROCHLORIDE [Concomitant]
     Indication: ARRHYTHMIA SUPRAVENTRICULAR

REACTIONS (1)
  - BRONCHOSTENOSIS [None]
